FAERS Safety Report 12967327 (Version 1)
Quarter: 2016Q4

REPORT INFORMATION
  Report Type: Spontaneous
  Country: FR (occurrence: FR)
  Receive Date: 20161123
  Receipt Date: 20161123
  Transmission Date: 20170207
  Serious: Yes (Other)
  Sender: FDA-Public Use
  Company Number: FR-009507513-1610FRA003170

PATIENT
  Age: 36 Year
  Sex: Female
  Weight: 169 kg

DRUGS (2)
  1. NEXPLANON [Suspect]
     Active Substance: ETONOGESTREL
     Dosage: UNK
     Dates: start: 20140220
  2. SEROPRAM [Concomitant]
     Active Substance: CITALOPRAM HYDROBROMIDE
     Indication: DEPRESSION
     Dosage: 1/2 TABLET EVERY 2 DAYS
     Dates: start: 201509

REACTIONS (2)
  - Lymphangitis [Unknown]
  - Erysipelas [Unknown]

NARRATIVE: CASE EVENT DATE: 20161002
